FAERS Safety Report 19874022 (Version 1)
Quarter: 2021Q3

REPORT INFORMATION
  Report Type: Spontaneous
  Country: IN (occurrence: IN)
  Receive Date: 20210923
  Receipt Date: 20210923
  Transmission Date: 20211014
  Serious: Yes (Other)
  Sender: FDA-Public Use
  Company Number: ALC2021IN005187

PATIENT
  Age: 71 Year
  Sex: Female

DRUGS (1)
  1. BSS [Suspect]
     Active Substance: CALCIUM CHLORIDE\MAGNESIUM CHLORIDE\POTASSIUM CHLORIDE\SODIUM ACETATE\SODIUM CHLORIDE\SODIUM CITRATE
     Indication: CATARACT OPERATION
     Dosage: UNK
     Route: 065

REACTIONS (9)
  - Hypopyon [Recovering/Resolving]
  - Iritis [Recovering/Resolving]
  - Corneal oedema [Recovering/Resolving]
  - Anterior chamber disorder [Recovering/Resolving]
  - Vision blurred [Recovering/Resolving]
  - Toxic anterior segment syndrome [Recovering/Resolving]
  - Post procedural inflammation [Recovering/Resolving]
  - Conjunctivitis [Recovering/Resolving]
  - Aqueous fibrin [Recovering/Resolving]

NARRATIVE: CASE EVENT DATE: 20210828
